FAERS Safety Report 24278578 (Version 5)
Quarter: 2025Q3

REPORT INFORMATION
  Report Type: Report from Study
  Country: US (occurrence: US)
  Receive Date: 20240903
  Receipt Date: 20250821
  Transmission Date: 20251020
  Serious: No
  Sender: SUNOVION
  Company Number: US-SUMITOMO PHARMA SWITZERLAND GMBH-2024SPA000916

PATIENT
  Age: 60 Year
  Sex: Male

DRUGS (18)
  1. ORGOVYX [Suspect]
     Active Substance: RELUGOLIX
     Indication: Prostate cancer
     Dosage: 360 MG, SINGLE
     Route: 048
     Dates: start: 20230701, end: 20230701
  2. ORGOVYX [Suspect]
     Active Substance: RELUGOLIX
     Dosage: 120 MG, QD
     Route: 048
     Dates: start: 20230702
  3. AMLODIPINE BESYLATE [Concomitant]
     Active Substance: AMLODIPINE BESYLATE
  4. Belladona (HP8) [Concomitant]
  5. Immpower ER [Concomitant]
  6. IRBESARTAN [Concomitant]
     Active Substance: IRBESARTAN
  7. Protocel advanced formula complete phytostero [Concomitant]
  8. TRIAMCINOLONE ACETONIDE [Concomitant]
     Active Substance: TRIAMCINOLONE ACETONIDE
  9. VITAMIN D3 [Concomitant]
     Active Substance: CHOLECALCIFEROL
  10. Protocel [Concomitant]
  11. Besartan [Concomitant]
  12. AMLODIPINE [Concomitant]
     Active Substance: AMLODIPINE BESYLATE
  13. B12 [Concomitant]
  14. EZETIMIBE\SIMVASTATIN [Concomitant]
     Active Substance: EZETIMIBE\SIMVASTATIN
  15. LUPRON DEPOT [Concomitant]
     Active Substance: LEUPROLIDE ACETATE
  16. WHEAT GERM OIL [Concomitant]
     Active Substance: WHEAT GERM OIL
     Route: 048
  17. HERBALS [Concomitant]
     Active Substance: HERBALS
  18. ERLEADA [Concomitant]
     Active Substance: APALUTAMIDE

REACTIONS (8)
  - Oedema peripheral [Unknown]
  - Androgen deficiency [Unknown]
  - Muscle atrophy [Unknown]
  - Varicose vein [Unknown]
  - Skin atrophy [Unknown]
  - Anorgasmia [Unknown]
  - Hot flush [Unknown]
  - Asthenia [Unknown]
